FAERS Safety Report 23157578 (Version 1)
Quarter: 2023Q4

REPORT INFORMATION
  Report Type: Report from Study
  Country: DE (occurrence: DE)
  Receive Date: 20231108
  Receipt Date: 20231108
  Transmission Date: 20240110
  Serious: Yes (Disabling)
  Sender: FDA-Public Use
  Company Number: DE-UCBSA-2023040714

PATIENT
  Sex: Female

DRUGS (9)
  1. BIMEKIZUMAB [Suspect]
     Active Substance: BIMEKIZUMAB
     Indication: Psoriasis
     Dosage: UNK
     Dates: start: 20220929, end: 20221221
  2. OLIGOMERIC PROANTHOCYANIDIN [Concomitant]
     Indication: Supplementation therapy
     Dosage: 800 TWICE PER DAY
     Route: 048
     Dates: start: 2019
  3. ATORVASTATIN [Concomitant]
     Active Substance: ATORVASTATIN
     Indication: Hypercholesterolaemia
     Dosage: 10 MILLIGRAM, ONCE DAILY (QD)
     Route: 048
     Dates: start: 202201
  4. ATORVASTATIN [Concomitant]
     Active Substance: ATORVASTATIN
     Dosage: UNK
  5. LINOLEIC ACID [Concomitant]
     Active Substance: LINOLEIC ACID
     Indication: Supplementation therapy
     Dosage: 500 MILLIGRAM, 2X/DAY (BID)
     Route: 048
     Dates: start: 2019
  6. UBIDECARENONE [Concomitant]
     Active Substance: UBIDECARENONE
     Indication: Supplementation therapy
     Dosage: 250 MILLIGRAM, ONCE DAILY (QD)
     Route: 048
     Dates: start: 2019
  7. ASTAXANTHIN [Concomitant]
     Active Substance: ASTAXANTHIN
     Indication: Supplementation therapy
     Dosage: 4 MILLIGRAM, ONCE DAILY (QD)
     Route: 048
     Dates: start: 2019
  8. SPIRULINA SPP. [Concomitant]
     Indication: Supplementation therapy
     Dosage: 400 MILLIGRAM, 3X/DAY (TID)
     Route: 048
     Dates: start: 2019
  9. CHLORELLA SPP. [Concomitant]
     Indication: Supplementation therapy
     Dosage: 400 MILLIGRAM 3 TIMES
     Route: 048
     Dates: start: 2019

REACTIONS (3)
  - Nausea [Recovered/Resolved]
  - Gastrointestinal disorder [Recovered/Resolved]
  - Diarrhoea [Recovered/Resolved]

NARRATIVE: CASE EVENT DATE: 20221221
